FAERS Safety Report 11710486 (Version 1)
Quarter: 2015Q4

REPORT INFORMATION
  Report Type: Spontaneous
  Country: US (occurrence: US)
  Receive Date: 20151104
  Receipt Date: 20151104
  Transmission Date: 20160304
  Serious: No
  Sender: FDA-Public Use
  Company Number: US-ELI_LILLY_AND_COMPANY-US201103000622

PATIENT
  Age: 70 Year
  Sex: Female

DRUGS (2)
  1. FORTEO [Suspect]
     Active Substance: TERIPARATIDE
     Dosage: 20 UG, QD
     Route: 065
     Dates: start: 20110401, end: 20110411
  2. FORTEO [Suspect]
     Active Substance: TERIPARATIDE
     Indication: OSTEOPOROSIS
     Dosage: 20 UG, EACH MORNING
     Dates: start: 201011, end: 20110226

REACTIONS (19)
  - Dizziness [Not Recovered/Not Resolved]
  - Osteoarthritis [Unknown]
  - Abdominal discomfort [Recovered/Resolved]
  - Insomnia [Unknown]
  - Back pain [Unknown]
  - Feeling abnormal [Unknown]
  - Depressed mood [Unknown]
  - Pain in extremity [Unknown]
  - Dysgeusia [Unknown]
  - Fatigue [Recovering/Resolving]
  - Irritability [Unknown]
  - Sleep disorder [Unknown]
  - Arthralgia [Unknown]
  - Pain [Recovering/Resolving]
  - Nightmare [Unknown]
  - Decreased appetite [Unknown]
  - Arthritis [Unknown]
  - Abnormal dreams [Recovering/Resolving]
  - Movement disorder [Unknown]

NARRATIVE: CASE EVENT DATE: 201102
